FAERS Safety Report 15284377 (Version 1)
Quarter: 2018Q3

REPORT INFORMATION
  Report Type: Not Available
  Country: CA (occurrence: CA)
  Receive Date: 20180816
  Receipt Date: 20180816
  Transmission Date: 20181010
  Serious: Yes (Life-Threatening, Hospitalization)
  Sender: FDA-Public Use
  Company Number: CA-CELGENEUS-CAN-20180803367

PATIENT
  Age: 67 Year
  Sex: Female
  Weight: 76 kg

DRUGS (5)
  1. CALCIUM [Concomitant]
     Active Substance: CALCIUM
     Indication: PRODUCT USED FOR UNKNOWN INDICATION
     Route: 065
  2. OTEZLA [Suspect]
     Active Substance: APREMILAST
     Indication: PSORIATIC ARTHROPATHY
     Dosage: 60 MILLIGRAM
     Route: 048
  3. ALENDRONATE [Concomitant]
     Active Substance: ALENDRONATE SODIUM
     Indication: PRODUCT USED FOR UNKNOWN INDICATION
     Route: 048
  4. TURMERIC [Concomitant]
     Active Substance: HERBALS\TURMERIC
     Indication: PRODUCT USED FOR UNKNOWN INDICATION
     Route: 065
  5. PREDNISONE. [Concomitant]
     Active Substance: PREDNISONE
     Indication: PRODUCT USED FOR UNKNOWN INDICATION
     Route: 065

REACTIONS (16)
  - Nausea [Unknown]
  - Ventricular fibrillation [Unknown]
  - Resuscitation [Unknown]
  - Hyperhidrosis [Unknown]
  - Left ventricular dysfunction [Unknown]
  - Cardiac arrest [Unknown]
  - Cardiac failure [Unknown]
  - Cardioversion [Unknown]
  - Flushing [Unknown]
  - Loss of consciousness [Unknown]
  - Ventricular tachycardia [Unknown]
  - Vomiting [Unknown]
  - Ejection fraction decreased [Unknown]
  - Tachycardia [Unknown]
  - Cardiomyopathy [Unknown]
  - Congestive cardiomyopathy [Unknown]
